FAERS Safety Report 16920375 (Version 1)
Quarter: 2019Q4

REPORT INFORMATION
  Report Type: Spontaneous
  Country: US (occurrence: US)
  Receive Date: 20190822
  Receipt Date: 20190822
  Transmission Date: 20200122
  Serious: No
  Sender: FDA-Public Use
  Company Number: None

PATIENT
  Sex: Female

DRUGS (1)
  1. GRANIX [Suspect]
     Active Substance: TBO-FILGRASTIM
     Indication: BREAST CANCER
     Dosage: ?          OTHER DOSE:300MCG/.5;?
     Route: 058
     Dates: start: 20190708

REACTIONS (5)
  - Bone pain [None]
  - Abdominal pain lower [None]
  - Abdominal pain upper [None]
  - Splenic rupture [None]
  - Musculoskeletal pain [None]
